FAERS Safety Report 8281797-X (Version None)
Quarter: 2012Q2

REPORT INFORMATION
  Report Type: 
  Country: None (occurrence: None)
  Receive Date: 20120413
  Receipt Date: 20120404
  Transmission Date: 20120825
  Serious: Yes (Other)
  Sender: FDA-Public Use
  Company Number: PHHY2012JP017644

PATIENT
  Age: 92 Year
  Sex: Female

DRUGS (10)
  1. YOKUKAN-SAN [Concomitant]
     Dosage: UNK UKN, UNK
  2. SENNOSIDE [Concomitant]
     Dosage: UNK UKN, UNK
  3. PRAVASTATIN SODIUM [Concomitant]
     Dosage: UNK UKN, UNK
  4. GLIMEPIRIDE [Concomitant]
     Dosage: UNK UKN, UNK
  5. RANITAC [Concomitant]
     Dosage: UNK UKN, UNK
  6. SPIRONOLACTONE [Concomitant]
     Dosage: UNK UKN, UNK
  7. FUROSEMIDE [Concomitant]
     Dosage: UNK UKN, UNK
  8. RIVASTIGMINE [Suspect]
     Indication: DEMENTIA ALZHEIMER'S TYPE
     Dosage: 4.5 MG, DAILY
     Route: 062
     Dates: start: 20111115, end: 20111212
  9. RIVASTIGMINE [Suspect]
     Dosage: 9 MG, DAILY
     Route: 062
     Dates: start: 20111213
  10. OLMESARTAN MEDOXOMIL [Concomitant]
     Dosage: UNK UKN, UNK

REACTIONS (5)
  - TREMOR [None]
  - PRURITUS [None]
  - HYPERTENSION [None]
  - ALTERED STATE OF CONSCIOUSNESS [None]
  - DERMATITIS CONTACT [None]
